FAERS Safety Report 4511531-8 (Version None)
Quarter: 2004Q4

REPORT INFORMATION
  Report Type: 
  Country: None (occurrence: None)
  Receive Date: 20041129
  Receipt Date: 20040913
  Transmission Date: 20050328
  Serious: Yes (Hospitalization)
  Sender: FDA-Public Use
  Company Number: US-BRISTOL-MYERS SQUIBB COMPANY-12700670

PATIENT
  Age: 26 Year
  Sex: Female

DRUGS (2)
  1. ABILIFY [Suspect]
     Indication: SCHIZOPHRENIA
     Route: 048
     Dates: start: 20030426, end: 20040602
  2. DEPAKOTE [Concomitant]
     Dosage: 250 MG IN A.M. AND 500 MG IN P.M.

REACTIONS (1)
  - EXTRAPYRAMIDAL DISORDER [None]
